FAERS Safety Report 18514364 (Version 2)
Quarter: 2021Q1

REPORT INFORMATION
  Report Type: Report from Study
  Country: BR (occurrence: BR)
  Receive Date: 20201117
  Receipt Date: 20210121
  Transmission Date: 20210419
  Serious: Yes (Hospitalization, Other)
  Sender: FDA-Public Use
  Company Number: BR-UCBSA-2020045852

PATIENT
  Age: 69 Year
  Sex: Female
  Weight: 67 kg

DRUGS (1)
  1. CERTOLIZUMAB PEGOL RA [Suspect]
     Active Substance: CERTOLIZUMAB PEGOL
     Indication: RHEUMATOID ARTHRITIS
     Dosage: UNK, MONTHLY (QM)
     Route: 058
     Dates: start: 2019, end: 2020

REACTIONS (3)
  - Hiatus hernia [Unknown]
  - Hypertension [Unknown]
  - Gastrointestinal bacterial infection [Recovered/Resolved]

NARRATIVE: CASE EVENT DATE: 20201010
